FAERS Safety Report 5229287-2 (Version None)
Quarter: 2007Q1

REPORT INFORMATION
  Report Type: 
  Country: None (occurrence: None)
  Receive Date: 20061201
  Receipt Date: 20060905
  Transmission Date: 20070707
  Serious: No
  Sender: FDA-Public Use
  Company Number: US200609001525

PATIENT
  Age: 52 Year
  Sex: Female

DRUGS (3)
  1. HUMATROPE [Suspect]
     Indication: GROWTH HORMONE DEFICIENCY
     Dates: start: 20040810, end: 20060301
  2. HUMATROPE [Suspect]
     Indication: GROWTH HORMONE DEFICIENCY
     Dates: start: 20060815
  3. CYMBALTA [Suspect]
     Indication: DEPRESSION
     Dates: start: 20050501, end: 20050801

REACTIONS (8)
  - BLOOD POTASSIUM DECREASED [None]
  - BLOOD PRESSURE DECREASED [None]
  - DIARRHOEA [None]
  - DIZZINESS [None]
  - DYSPNOEA [None]
  - ELECTROLYTE IMBALANCE [None]
  - HYPERHIDROSIS [None]
  - HYPOAESTHESIA [None]
